FAERS Safety Report 9783766 (Version 1)
Quarter: 2013Q4

REPORT INFORMATION
  Report Type: Spontaneous
  Country: US (occurrence: US)
  Receive Date: 20131226
  Receipt Date: 20131226
  Transmission Date: 20140711
  Serious: No
  Sender: FDA-Public Use
  Company Number: US-PFIZER INC-2013366512

PATIENT
  Age: 77 Year
  Sex: Female
  Weight: 59.86 kg

DRUGS (2)
  1. CELEBREX [Suspect]
     Indication: ARTHRITIS
     Dosage: 200 MG, SINGLE
     Dates: start: 20131220, end: 20131220
  2. CELEBREX [Suspect]
     Indication: SPONDYLITIS

REACTIONS (1)
  - Vision blurred [Not Recovered/Not Resolved]
